FAERS Safety Report 8560392 (Version 2)
Quarter: 2012Q4

REPORT INFORMATION
  Report Type: 
  Country: US (occurrence: US)
  Receive Date: 20120514
  Receipt Date: 20121015
  Transmission Date: 20130627
  Serious: Yes (Hospitalization)
  Sender: FDA-Public Use
  Company Number: US-BAYER-2012-045834

PATIENT
  Age: 21 Year
  Sex: Female

DRUGS (5)
  1. YASMIN [Suspect]
  2. YAZ [Suspect]
  3. PROAIR HFA [Concomitant]
     Dosage: 90 UNK, UNK
  4. ALBUTEROL [Concomitant]
  5. SLOW FE [Concomitant]
     Indication: ANAEMIA

REACTIONS (8)
  - Pulmonary embolism [None]
  - Anhedonia [None]
  - Anxiety [None]
  - Fear [None]
  - Injury [None]
  - Pain [None]
  - Emotional distress [None]
  - Quality of life decreased [None]
